FAERS Safety Report 6432392-6 (Version None)
Quarter: 2009Q4

REPORT INFORMATION
  Report Type: 
  Country: None (occurrence: None)
  Receive Date: 20091109
  Receipt Date: 20091030
  Transmission Date: 20100525
  Serious: Yes (Hospitalization)
  Sender: FDA-Public Use
  Company Number: US-JNJFOC-20091100416

PATIENT
  Age: 12 Year
  Sex: Male

DRUGS (4)
  1. REMICADE [Suspect]
     Dosage: MAINTENANCE DOSE
     Route: 042
     Dates: start: 20090701
  2. REMICADE [Suspect]
     Indication: CROHN'S DISEASE
     Dosage: INDUCTION PHASE
     Route: 042
     Dates: start: 20090701
  3. FLAGYL [Concomitant]
     Indication: CROHN'S DISEASE
  4. PENTASA [Concomitant]
     Indication: CROHN'S DISEASE

REACTIONS (4)
  - ENCEPHALITIS [None]
  - GRAND MAL CONVULSION [None]
  - HYPERTENSION [None]
  - PANCYTOPENIA [None]
